FAERS Safety Report 11164695 (Version 2)
Quarter: 2015Q2

REPORT INFORMATION
  Report Type: Spontaneous
  Country: IT (occurrence: IT)
  Receive Date: 20150604
  Receipt Date: 20150629
  Transmission Date: 20150821
  Serious: Yes (Hospitalization)
  Sender: FDA-Public Use
  Company Number: IT-SA-2015SA076583

PATIENT
  Age: 76 Year
  Sex: Male

DRUGS (1)
  1. JEVTANA [Suspect]
     Active Substance: CABAZITAXEL
     Indication: PROSTATE CANCER METASTATIC
     Dosage: DOSE- 45 MILLIGRAMS PER SQ MT OF  BODY SURFACE, CYCLIC
     Route: 042
     Dates: start: 20130408, end: 20130408

REACTIONS (3)
  - Oedema peripheral [Unknown]
  - Dyspnoea [Unknown]
  - Cardiac failure [Unknown]

NARRATIVE: CASE EVENT DATE: 20130429
